FAERS Safety Report 5143512-8 (Version None)
Quarter: 2006Q4

REPORT INFORMATION
  Report Type: 
  Country: None (occurrence: None)
  Receive Date: 20061103
  Receipt Date: 20060908
  Transmission Date: 20070319
  Serious: Yes (Other)
  Sender: FDA-Public Use
  Company Number: PHBS2006JP13891

PATIENT
  Age: 58 Year
  Sex: Female

DRUGS (2)
  1. AREDIA [Concomitant]
     Route: 065
  2. ZOMETA [Suspect]
     Indication: METASTASES TO BONE
     Dosage: 4 MG, VIA DRIP INFUSION
     Route: 042
     Dates: start: 20060803, end: 20060915

REACTIONS (1)
  - ERYTHEMA MULTIFORME [None]
